FAERS Safety Report 5868968-4 (Version None)
Quarter: 2008Q3

REPORT INFORMATION
  Report Type: 
  Country: None (occurrence: None)
  Receive Date: 20080903
  Receipt Date: 20080822
  Transmission Date: 20090109
  Serious: Yes (Other)
  Sender: FDA-Public Use
  Company Number: JP-ROCHE-566142

PATIENT
  Sex: Male
  Weight: 70 kg

DRUGS (5)
  1. PEGASYS [Suspect]
     Dosage: DOSE DECREASED
     Route: 058
     Dates: start: 20071112, end: 20080414
  2. PEGASYS [Suspect]
     Route: 058
     Dates: start: 20080421, end: 20080421
  3. COPEGUS [Suspect]
     Dosage: DOSE INCREASED
     Route: 048
     Dates: start: 20071112, end: 20071202
  4. COPEGUS [Suspect]
     Dosage: DIVIDED INTO TWO DOSES; DOSE DECREASED
     Route: 048
     Dates: start: 20071203, end: 20080420
  5. COPEGUS [Suspect]
     Route: 048
     Dates: start: 20080421, end: 20080501

REACTIONS (1)
  - RHABDOMYOLYSIS [None]
